FAERS Safety Report 7963752-X (Version None)
Quarter: 2011Q4

REPORT INFORMATION
  Report Type: 
  Country: None (occurrence: None)
  Receive Date: 20111208
  Receipt Date: 20111126
  Transmission Date: 20120403
  Serious: Yes (Hospitalization, Other)
  Sender: FDA-Public Use
  Company Number: US-BAYER-2011-031636

PATIENT
  Age: 31 Year
  Sex: Female
  Weight: 68 kg

DRUGS (7)
  1. DROSPIRENONE AND ETHINYL ESTRADIOL [Suspect]
     Dosage: UNK
     Dates: start: 20080701, end: 20081101
  2. SERTRALINE HYDROCHLORIDE [Concomitant]
     Dosage: UNK
     Dates: start: 20071113
  3. NAPROXEN [Concomitant]
     Dosage: UNK
     Dates: start: 20080620
  4. ACYCLOVIR [Concomitant]
     Dosage: UNK
     Dates: start: 20080922
  5. YASMIN [Suspect]
     Indication: ORAL CONTRACEPTION
     Dosage: UNK
     Dates: start: 20060701, end: 20080701
  6. LORAZEPAM [Concomitant]
     Dosage: UNK
     Dates: start: 20080620
  7. LISINOPRIL [Concomitant]
     Dosage: UNK
     Dates: start: 20080901

REACTIONS (2)
  - DEEP VEIN THROMBOSIS [None]
  - THROMBOSIS [None]
